FAERS Safety Report 8354180-6 (Version None)
Quarter: 2012Q2

REPORT INFORMATION
  Report Type: 
  Country: None (occurrence: None)
  Receive Date: 20120511
  Receipt Date: 20120509
  Transmission Date: 20120825
  Serious: Yes (Life-Threatening, Other)
  Sender: FDA-Public Use
  Company Number: PHHY2012FR039561

PATIENT
  Age: 30 Year
  Sex: Female

DRUGS (4)
  1. IFOSFAMIDE [Suspect]
     Indication: BONE SARCOMA
     Dosage: 5 G/M2, UNK
  2. METOCLOPRAMIDE [Suspect]
     Indication: PROPHYLAXIS
     Dosage: 10 MG, TID
     Route: 042
  3. DOXORUBICIN HCL [Suspect]
     Indication: BONE SARCOMA
     Dosage: 50 MG/M2, UNK
  4. ONDANSETRON [Suspect]
     Indication: PROPHYLAXIS
     Dosage: 8 MG, BID

REACTIONS (4)
  - PREMATURE LABOUR [None]
  - MATERNAL EXPOSURE DURING PREGNANCY [None]
  - NEUTROPENIA [None]
  - ALOPECIA [None]
